FAERS Safety Report 5182071-0 (Version None)
Quarter: 2006Q4

REPORT INFORMATION
  Report Type: 
  Country: None (occurrence: None)
  Receive Date: 20061220
  Receipt Date: 20060505
  Transmission Date: 20070319
  Serious: No
  Sender: FDA-Public Use
  Company Number: US-GLAXOSMITHKLINE-A0604475A

PATIENT
  Age: 54 Year

DRUGS (3)
  1. COMMIT [Suspect]
  2. NICORETTE [Suspect]
  3. NICORETTE [Suspect]

REACTIONS (1)
  - INTENTIONAL DRUG MISUSE [None]
